FAERS Safety Report 6705637-2 (Version None)
Quarter: 2010Q2

REPORT INFORMATION
  Report Type: 
  Country: None (occurrence: None)
  Receive Date: 20100503
  Receipt Date: 20100422
  Transmission Date: 20101027
  Serious: No
  Sender: FDA-Public Use
  Company Number: 2009BI017176

PATIENT
  Age: 49 Year
  Sex: Female

DRUGS (5)
  1. TYSABRI [Suspect]
     Indication: MULTIPLE SCLEROSIS
     Route: 042
     Dates: start: 20081101
  2. ALTACE [Concomitant]
     Indication: HYPERTENSION
  3. NEXIUM [Concomitant]
     Indication: GASTROOESOPHAGEAL REFLUX DISEASE
  4. ZANAFLEX [Concomitant]
     Indication: MUSCLE SPASMS
  5. ZANAFLEX [Concomitant]
     Indication: MUSCLE TIGHTNESS

REACTIONS (7)
  - ANAEMIA [None]
  - BALANCE DISORDER [None]
  - COGNITIVE DISORDER [None]
  - DEPRESSION [None]
  - DIZZINESS [None]
  - MEMORY IMPAIRMENT [None]
  - SPEECH DISORDER [None]
